FAERS Safety Report 6161500-X (Version None)
Quarter: 2009Q2

REPORT INFORMATION
  Report Type: 
  Country: None (occurrence: None)
  Receive Date: 20090421
  Receipt Date: 20090415
  Transmission Date: 20091009
  Serious: Yes (Other)
  Sender: FDA-Public Use
  Company Number: PHHY2009JP05457

PATIENT
  Sex: Female
  Weight: 42 kg

DRUGS (3)
  1. ZOMETA [Suspect]
     Indication: METASTASES TO BONE
     Dosage: 4 MG, UNK
     Route: 042
     Dates: start: 20060606, end: 20061226
  2. ZOMETA [Suspect]
     Dosage: 4 MG, UNK
     Route: 042
     Dates: start: 20070313, end: 20070703
  3. AREDIA [Suspect]
     Indication: METASTASES TO BONE
     Dosage: 30 MG, UNK
     Route: 042
     Dates: start: 20040901, end: 20060523

REACTIONS (7)
  - BONE DISORDER [None]
  - GINGIVITIS [None]
  - OSTEONECROSIS [None]
  - PAIN [None]
  - PURULENT DISCHARGE [None]
  - TOOTH EXTRACTION [None]
  - TOOTHACHE [None]
